FAERS Safety Report 10735481 (Version 1)
Quarter: 2015Q1

REPORT INFORMATION
  Report Type: Report from Study
  Country: US (occurrence: US)
  Receive Date: 20150126
  Receipt Date: 20150126
  Transmission Date: 20150721
  Serious: No
  Sender: FDA-Public Use
  Company Number: US-009507513-1501USA008734

PATIENT
  Age: 23 Year
  Sex: Female
  Weight: 90.7 kg

DRUGS (1)
  1. IMPLANON [Suspect]
     Active Substance: ETONOGESTREL
     Dosage: UNK
     Route: 059
     Dates: start: 20140409, end: 20150121

REACTIONS (4)
  - Incorrect drug administration duration [Unknown]
  - Anxiety [Unknown]
  - Medical device removal [Unknown]
  - Panic attack [Unknown]

NARRATIVE: CASE EVENT DATE: 20150121
